FAERS Safety Report 25358874 (Version 1)
Quarter: 2025Q2

REPORT INFORMATION
  Report Type: Spontaneous
  Country: CN (occurrence: CN)
  Receive Date: 20250526
  Receipt Date: 20250526
  Transmission Date: 20250717
  Serious: Yes (Other)
  Sender: SANOFI AVENTIS
  Company Number: CN-DialogSolutions-SAAVPROD-PI771103-C1

PATIENT
  Age: 39 Year
  Sex: Female

DRUGS (3)
  1. DUPILUMAB [Suspect]
     Active Substance: DUPILUMAB
     Indication: Dermatitis atopic
     Dates: start: 2024
  2. BARICITINIB [Suspect]
     Active Substance: BARICITINIB
     Indication: Dermatitis atopic
     Dosage: 2 MG, QD
     Dates: start: 2021, end: 2021
  3. UPADACITINIB [Suspect]
     Active Substance: UPADACITINIB
     Indication: Dermatitis atopic
     Dosage: 15 MG, QD
     Dates: start: 2021, end: 2021

REACTIONS (7)
  - Cutaneous T-cell lymphoma stage IV [Recovering/Resolving]
  - Rash [Recovering/Resolving]
  - Skin plaque [Recovering/Resolving]
  - Skin exfoliation [Recovering/Resolving]
  - Skin hyperpigmentation [Recovering/Resolving]
  - Hyperkeratosis [Recovering/Resolving]
  - Skin hyperplasia [Recovering/Resolving]

NARRATIVE: CASE EVENT DATE: 20210101
